FAERS Safety Report 23339272 (Version 1)
Quarter: 2023Q4

REPORT INFORMATION
  Report Type: Spontaneous
  Country: TR (occurrence: TR)
  Receive Date: 20231226
  Receipt Date: 20231226
  Transmission Date: 20240109
  Serious: Yes (Other)
  Sender: FDA-Public Use
  Company Number: TR-ABBVIE-5559022

PATIENT

DRUGS (1)
  1. BOTOX [Suspect]
     Active Substance: ONABOTULINUMTOXINA
     Indication: Skin cosmetic procedure
     Dosage: TIME INTERVAL: AS NECESSARY: 100 UNITS
     Route: 065

REACTIONS (4)
  - Visual impairment [Recovered/Resolved with Sequelae]
  - Optic nerve injury [Unknown]
  - Therapeutic response unexpected [Unknown]
  - Pre-existing condition improved [Recovered/Resolved]
